FAERS Safety Report 12327160 (Version 2)
Quarter: 2017Q2

REPORT INFORMATION
  Report Type: Report from Study
  Country: US (occurrence: US)
  Receive Date: 20160503
  Receipt Date: 20170530
  Transmission Date: 20170830
  Serious: Yes (Other)
  Sender: FDA-Public Use
  Company Number: US-JNJFOC-20160425958

PATIENT
  Age: 67 Year
  Sex: Female

DRUGS (1)
  1. DURAGESIC [Suspect]
     Active Substance: FENTANYL
     Indication: PAIN
     Route: 062
     Dates: start: 20120210

REACTIONS (7)
  - Road traffic accident [Unknown]
  - Back pain [Unknown]
  - Application site rash [Recovered/Resolved]
  - Headache [Unknown]
  - Wrong technique in product usage process [Unknown]
  - Incorrect drug administration duration [Unknown]
  - Product quality issue [Unknown]

NARRATIVE: CASE EVENT DATE: 20160425
